FAERS Safety Report 4465416-6 (Version None)
Quarter: 2004Q4

REPORT INFORMATION
  Report Type: 
  Country: None (occurrence: None)
  Receive Date: 20041004
  Receipt Date: 20031117
  Transmission Date: 20050328
  Serious: Yes (Other)
  Sender: FDA-Public Use
  Company Number: BR-GLAXOSMITHKLINE-A0528055A

PATIENT
  Age: 28 Year
  Sex: Female
  Weight: 53 kg

DRUGS (2)
  1. PAROXETINE HCL [Suspect]
     Indication: DRUG USE FOR UNKNOWN INDICATION
     Dosage: 10MG PER DAY
     Route: 048
  2. RIVOTRIL [Concomitant]

REACTIONS (7)
  - DIARRHOEA [None]
  - HAEMORRHAGE [None]
  - MYALGIA [None]
  - NECK PAIN [None]
  - PAIN [None]
  - PANIC DISORDER [None]
  - TREMOR [None]
